FAERS Safety Report 4898832-9 (Version None)
Quarter: 2006Q1

REPORT INFORMATION
  Report Type: 
  Country: None (occurrence: None)
  Receive Date: 20060202
  Receipt Date: 20051201
  Transmission Date: 20060701
  Serious: Yes (Death)
  Sender: FDA-Public Use
  Company Number: JP-JPN-A20052942

PATIENT
  Age: 40 Year
  Sex: Female
  Weight: 70 kg

DRUGS (8)
  1. PAXIL [Suspect]
     Indication: DEPRESSION
     Dosage: 20MG PER DAY
     Route: 048
     Dates: start: 20040827
  2. DEPAKENE [Concomitant]
     Route: 048
  3. U PAN [Concomitant]
     Route: 048
  4. UNKNOWN DRUG [Concomitant]
     Route: 065
  5. ESTAZOLAM [Concomitant]
     Route: 048
  6. EVAMYL [Concomitant]
     Route: 048
  7. BENZALIN [Concomitant]
     Route: 048
  8. NOCBIN [Concomitant]
     Route: 048

REACTIONS (3)
  - CEREBRAL HAEMORRHAGE [None]
  - EPILEPSY [None]
  - EPISTAXIS [None]
